FAERS Safety Report 8184281-7 (Version None)
Quarter: 2012Q1

REPORT INFORMATION
  Report Type: 
  Country: None (occurrence: None)
  Receive Date: 20120207
  Receipt Date: 20110222
  Transmission Date: 20120608
  Serious: Yes (Other)
  Sender: FDA-Public Use
  Company Number: 2011027675

PATIENT
  Age: 47 Year
  Sex: Female
  Weight: 61.2356 kg

DRUGS (11)
  1. VIVAGLOBIN [Suspect]
  2. VIVAGLOBIN [Suspect]
  3. VIVAGLOBIN [Suspect]
  4. VIVAGLOBIN [Suspect]
     Indication: IMMUNODEFICIENCY COMMON VARIABLE
     Dosage: SEE IMAGE
     Route: 058
     Dates: start: 20100101, end: 20101101
  5. VIVAGLOBIN [Suspect]
  6. VIVAGLOBIN [Suspect]
  7. VIVAGLOBIN [Suspect]
  8. VIVAGLOBIN [Suspect]
  9. VIVAGLOBIN [Suspect]
  10. VIVAGLOBIN [Suspect]
  11. VIVAGLOBIN [Suspect]

REACTIONS (2)
  - LIVER FUNCTION TEST ABNORMAL [None]
  - HEPATIC STEATOSIS [None]
